FAERS Safety Report 16553965 (Version 1)
Quarter: 2019Q3

REPORT INFORMATION
  Report Type: Spontaneous
  Country: US (occurrence: US)
  Receive Date: 20190710
  Receipt Date: 20190710
  Transmission Date: 20191004
  Serious: No
  Sender: FDA-Public Use
  Company Number: US-BAYER-2019-127935

PATIENT
  Age: 28 Year
  Sex: Female

DRUGS (2)
  1. KYLEENA [Suspect]
     Active Substance: LEVONORGESTREL
     Indication: ADENOMYOSIS
  2. KYLEENA [Suspect]
     Active Substance: LEVONORGESTREL
     Indication: MENORRHAGIA
     Dosage: 17.5 MCG/24HR, CONT
     Route: 015
     Dates: start: 201806

REACTIONS (2)
  - Device use issue [None]
  - Off label use of device [None]

NARRATIVE: CASE EVENT DATE: 201806
